FAERS Safety Report 16462362 (Version 1)
Quarter: 2019Q2

REPORT INFORMATION
  Report Type: Spontaneous
  Country: US (occurrence: US)
  Receive Date: 20190621
  Receipt Date: 20190621
  Transmission Date: 20190711
  Serious: Yes (Other)
  Sender: FDA-Public Use
  Company Number: US-ROCHE-2336378

PATIENT
  Sex: Female

DRUGS (1)
  1. ZELBORAF [Suspect]
     Active Substance: VEMURAFENIB
     Indication: COLON CANCER
     Dosage: ONGOING: YES
     Route: 048
     Dates: start: 20190523

REACTIONS (3)
  - Renal atrophy [Unknown]
  - Rash [Unknown]
  - Product dose omission [Unknown]
